FAERS Safety Report 4373730-8 (Version None)
Quarter: 2004Q2

REPORT INFORMATION
  Report Type: 
  Country: None (occurrence: None)
  Receive Date: 20040607
  Receipt Date: 20040607
  Transmission Date: 20050107
  Serious: Yes (Hospitalization)
  Sender: FDA-Public Use
  Company Number: None

PATIENT
  Age: 44 Year
  Sex: Female
  Weight: 56.246 kg

DRUGS (8)
  1. IRINOTECAN-CPT11- PFIZER/PHARMACIA [Suspect]
     Indication: UTERINE LEIOMYOSARCOMA
     Dosage: 100 MG/M2 DAYS 1 AND 8 IV
     Route: 042
     Dates: start: 20040325, end: 20040513
  2. IRINOTECAN-CPT11- PFIZER/PHARMACIA [Suspect]
     Indication: UTERINE LEIOMYOSARCOMA
  3. XELODA [Suspect]
     Indication: UTERINE LEIOMYOSARCOMA
     Dosage: 2, 000 MG/M2 DAYS 1 AND 8 ORAL
     Route: 048
     Dates: start: 20040326, end: 20040517
  4. XELODA [Suspect]
  5. PERCOCET [Concomitant]
  6. AMBIEN [Concomitant]
  7. PREMARIN [Concomitant]
  8. ATIVAN [Concomitant]

REACTIONS (2)
  - DEHYDRATION [None]
  - DIARRHOEA [None]
